FAERS Safety Report 5762198-2 (Version None)
Quarter: 2008Q2

REPORT INFORMATION
  Report Type: 
  Country: None (occurrence: None)
  Receive Date: 20080609
  Receipt Date: 20080527
  Transmission Date: 20081010
  Serious: Yes (Other)
  Sender: FDA-Public Use
  Company Number: BR-BAYER-200814489LA

PATIENT
  Age: 21 Month
  Sex: Male
  Weight: 14 kg

DRUGS (1)
  1. YASMIN [Suspect]
     Indication: CONTRACEPTION
     Route: 064
     Dates: start: 20050601, end: 20050101

REACTIONS (1)
  - ANAEMIA [None]
